FAERS Safety Report 8330976-1 (Version None)
Quarter: 2012Q2

REPORT INFORMATION
  Report Type: 
  Country: None (occurrence: None)
  Receive Date: 20120502
  Receipt Date: 20120404
  Transmission Date: 20120825
  Serious: No
  Sender: FDA-Public Use
  Company Number: US-AMGEN-USASP2011034827

PATIENT
  Age: 58 Year
  Sex: Female

DRUGS (3)
  1. ENBREL [Suspect]
     Indication: RHEUMATOID ARTHRITIS
     Dosage: 50 MG, QWK
     Dates: start: 20110621
  2. ENBREL [Suspect]
     Indication: OSTEOARTHRITIS
  3. ENBREL [Suspect]
     Indication: PSORIATIC ARTHROPATHY

REACTIONS (12)
  - INJECTION SITE SWELLING [None]
  - GRIP STRENGTH DECREASED [None]
  - INJECTION SITE ERYTHEMA [None]
  - ARTHRALGIA [None]
  - JOINT STIFFNESS [None]
  - INJECTION SITE WARMTH [None]
  - JOINT SWELLING [None]
  - INJECTION SITE INDURATION [None]
  - INJECTION SITE REACTION [None]
  - INJECTION SITE PRURITUS [None]
  - ASTHENIA [None]
  - INJECTION SITE PAIN [None]
